FAERS Safety Report 4892688-6 (Version None)
Quarter: 2006Q1

REPORT INFORMATION
  Report Type: 
  Country: None (occurrence: None)
  Receive Date: 20060125
  Receipt Date: 20060125
  Transmission Date: 20060701
  Serious: Yes (Hospitalization)
  Sender: FDA-Public Use
  Company Number: None

PATIENT
  Age: 61 Year
  Sex: Female

DRUGS (1)
  1. TETRACYCLINE [Suspect]
     Indication: URINARY TRACT INFECTION STAPHYLOCOCCAL
     Dosage: 250MG PO TID
     Route: 048
     Dates: start: 20050630, end: 20050702

REACTIONS (3)
  - MICROANGIOPATHY [None]
  - PANCREATITIS [None]
  - THROMBOTIC THROMBOCYTOPENIC PURPURA [None]
